FAERS Safety Report 8023363-7 (Version None)
Quarter: 2012Q1

REPORT INFORMATION
  Report Type: 
  Country: None (occurrence: None)
  Receive Date: 20120104
  Receipt Date: 20120103
  Transmission Date: 20120608
  Serious: Yes (Hospitalization)
  Sender: FDA-Public Use
  Company Number: BE-ABBOTT-11P-013-0710149-00

PATIENT
  Sex: Female

DRUGS (5)
  1. BIOFENAC [Concomitant]
     Indication: PRODUCT USED FOR UNKNOWN INDICATION
  2. METHOTREXATE [Concomitant]
     Indication: PSORIATIC ARTHROPATHY
     Dates: start: 20080213
  3. HUMIRA [Suspect]
     Dates: start: 20100901
  4. HUMIRA [Suspect]
     Indication: PSORIATIC ARTHROPATHY
     Dates: start: 20080829, end: 20100808
  5. UNKNOWN DVT PREVENTION [Concomitant]
     Indication: THROMBOSIS PROPHYLAXIS

REACTIONS (1)
  - OSTEOARTHRITIS [None]
